FAERS Safety Report 6729519 (Version 2)
Quarter: 2014Q1

REPORT INFORMATION
  Report Type: Other
  Country: JP (occurrence: JP)
  Receive Date: 20080818
  Receipt Date: 20140212
  Transmission Date: 20141002
  Serious: Yes (Hospitalization)
  Sender: FDA-Public Use
  Company Number: JP-BRISTOL-MYERS SQUIBB COMPANY-14296685

PATIENT
  Age: 77 Year
  Sex: Female

DRUGS (10)
  1. IDARUBICIN [Suspect]
     Indication: ACUTE MONOCYTIC LEUKAEMIA
  2. TOSUFLOXACIN [Suspect]
     Indication: FEBRILE NEUTROPENIA
  3. FLUCONAZOLE [Suspect]
     Indication: FEBRILE NEUTROPENIA
  4. VANCOMYCIN [Suspect]
     Indication: FEBRILE NEUTROPENIA
  5. MEROPENEM [Suspect]
     Indication: FEBRILE NEUTROPENIA
  6. MICAFUNGIN SODIUM [Suspect]
     Indication: FEBRILE NEUTROPENIA
  7. MAXIPIME [Suspect]
     Indication: FEBRILE NEUTROPENIA
     Route: 041
  8. CIPROFLOXACIN [Suspect]
     Indication: FEBRILE NEUTROPENIA
  9. ALLOPURINOL [Suspect]
     Indication: PROPHYLAXIS
  10. CYTARABINE [Suspect]
     Indication: ACUTE MONOCYTIC LEUKAEMIA

REACTIONS (1)
  - Drug reaction with eosinophilia and systemic symptoms [Recovering/Resolving]
